FAERS Safety Report 4527769-X (Version None)
Quarter: 2004Q4

REPORT INFORMATION
  Report Type: 
  Country: None (occurrence: None)
  Receive Date: 20041123
  Receipt Date: 20040311
  Transmission Date: 20050328
  Serious: Yes (Other)
  Sender: FDA-Public Use
  Company Number: CHPA2004US01565

PATIENT
  Sex: Female

DRUGS (1)
  1. WALMART/EQUATE STEP 21MG (NCH)(NCOTINE) TRANS-THERAPEUTIC-SYSTEM [Suspect]
     Indication: SMOKING CESSATION THERAPY
     Dosage: 1 PATCH, ONCE/SINGLE, TRANSDERMAL
     Route: 062
     Dates: start: 20040310, end: 20040310

REACTIONS (4)
  - CONVULSION [None]
  - DIZZINESS [None]
  - HOT FLUSH [None]
  - PROSTRATION [None]
